FAERS Safety Report 5085626-7 (Version None)
Quarter: 2006Q3

REPORT INFORMATION
  Report Type: 
  Country: None (occurrence: None)
  Receive Date: 20060822
  Receipt Date: 20051109
  Transmission Date: 20061208
  Serious: Yes (Hospitalization)
  Sender: FDA-Public Use
  Company Number: US-BRISTOL-MYERS SQUIBB COMPANY-13174578

PATIENT
  Age: 45 Year
  Sex: Male

DRUGS (1)
  1. BLENOXANE [Suspect]
     Indication: NON-HODGKIN'S LYMPHOMA
     Dates: start: 20050101

REACTIONS (1)
  - PULMONARY TOXICITY [None]
